FAERS Safety Report 10235879 (Version 1)
Quarter: 2014Q2

REPORT INFORMATION
  Report Type: Spontaneous
  Country: US (occurrence: None)
  Receive Date: 20140612
  Receipt Date: 20140612
  Transmission Date: 20141212
  Serious: Yes (Death)
  Sender: FDA-Public Use
  Company Number: None

PATIENT
  Age: 81 Year
  Sex: Female
  Weight: 98 kg

DRUGS (22)
  1. TRIMETHOPRIM/SULFAMETHOXAZOLE [Suspect]
     Indication: OROPHARYNGEAL CANDIDIASIS
     Route: 048
     Dates: start: 20140505
  2. TRIMETHOPRIM/SULFAMETHOXAZOLE [Suspect]
     Indication: CELLULITIS
     Route: 048
     Dates: start: 20140505
  3. FLUTICASONE (FLONASE) [Concomitant]
  4. ARTIFICIAL TEARS [Concomitant]
  5. NAPROXEN (NAPROSYN) [Concomitant]
  6. NYSTATIN (NYSTOP) [Concomitant]
  7. HYDROCODONE-ACETAMINOPHEN (NORCO) [Concomitant]
  8. CLOTRIMAZOLE (LOTRIMIN AF/MYCELEX) [Concomitant]
  9. ACETAMINOPHEN (TYLENOL) [Concomitant]
  10. ONDANSETRON (ZOFRAN ODT) [Concomitant]
  11. SIMVASTATIN (ZOCOR) [Concomitant]
  12. ASPIRIN (ECOTRIN LOW STRENGTH) [Concomitant]
  13. BUPROPION (WELLBUTRIN) [Concomitant]
  14. MULTIVITAMIN [Concomitant]
  15. CALCIUM CARBONATE-VIT D3 (OS-CAL 500 + D) [Concomitant]
  16. SERTRALINE (ZOLOFT) [Concomitant]
  17. IPRATROPIUM (ATROVENT HFA) [Concomitant]
  18. BECLOMETHASONE DIPROPIONATE (QVAR 80) [Concomitant]
  19. ALBUTEROL (PROAIR HFA/PROVENTIL HFA) [Concomitant]
  20. LORAZEPAM (ATIVAN) [Concomitant]
  21. SALMETEROL (SEREVENT) [Concomitant]
  22. LORATADINE (CLARITIN) [Concomitant]

REACTIONS (5)
  - Cellulitis [None]
  - Toxic epidermal necrolysis [None]
  - Stevens-Johnson syndrome [None]
  - Macule [None]
  - Rash papular [None]
